FAERS Safety Report 21886723 (Version 1)
Quarter: 2023Q1

REPORT INFORMATION
  Report Type: Spontaneous
  Country: US (occurrence: None)
  Receive Date: 20230119
  Receipt Date: 20230119
  Transmission Date: 20230418
  Serious: Yes (Hospitalization)
  Sender: FDA-Public Use
  Company Number: None

PATIENT
  Age: 47 Year
  Sex: Female
  Weight: 90 kg

DRUGS (5)
  1. OZEMPIC [Suspect]
     Active Substance: SEMAGLUTIDE
     Indication: Obesity
     Dates: start: 20221118, end: 20221125
  2. OMEPRAZOLE [Concomitant]
     Active Substance: OMEPRAZOLE
  3. TAMOXIFEN [Concomitant]
     Active Substance: TAMOXIFEN
  4. b12 supplements [Concomitant]
  5. VITAMIN D [Concomitant]
     Active Substance: VITAMIN D NOS

REACTIONS (6)
  - Diarrhoea [None]
  - Abdominal pain [None]
  - Eructation [None]
  - Dehydration [None]
  - Presyncope [None]
  - Parosmia [None]

NARRATIVE: CASE EVENT DATE: 20221120
